FAERS Safety Report 23093785 (Version 5)
Quarter: 2024Q3

REPORT INFORMATION
  Report Type: Report from Study
  Country: GR (occurrence: GR)
  Receive Date: 20231023
  Receipt Date: 20240903
  Transmission Date: 20241016
  Serious: Yes (Other)
  Sender: ABBVIE
  Company Number: GR-ABBVIE-5456359

PATIENT
  Sex: Male
  Weight: 60 kg

DRUGS (6)
  1. CARBIDOPA\LEVODOPA [Suspect]
     Active Substance: CARBIDOPA\LEVODOPA
     Indication: Parkinson^s disease
     Dosage: MORNING DOSE: 12.0 ML; CONTINUOUS RATE: 2.1 ML/H; EXTRA DOSE: 1.5 ML
     Route: 050
     Dates: start: 20200721
  2. CARBIDOPA\LEVODOPA [Suspect]
     Active Substance: CARBIDOPA\LEVODOPA
     Dosage: MORNING DOSE: 12.0 ML; CONTINUOUS RATE: 2.1 ML/H; EXTRA DOSE: 1.5 ML
     Route: 050
  3. CARBIDOPA\LEVODOPA [Suspect]
     Active Substance: CARBIDOPA\LEVODOPA
     Dosage: MORNING DOSE: 12.0 ML; CONTINUOUS RATE: 1.8 ML/H; EXTRA DOSE: 1.5 ML
     Route: 050
  4. DEPRERAM [Concomitant]
     Indication: Insomnia
     Route: 048
  5. RIVETAL [Concomitant]
     Indication: Product used for unknown indication
     Route: 048
  6. SYMMETREL [Concomitant]
     Active Substance: AMANTADINE HYDROCHLORIDE
     Indication: Product used for unknown indication
     Route: 048

REACTIONS (8)
  - Carotid artery stenosis [Not Recovered/Not Resolved]
  - Balance disorder [Unknown]
  - Carotid artery disease [Not Recovered/Not Resolved]
  - Granuloma [Recovered/Resolved]
  - Stoma site hypergranulation [Not Recovered/Not Resolved]
  - Dementia [Not Recovered/Not Resolved]
  - Hyperkinesia [Unknown]
  - Arteriosclerosis [Not Recovered/Not Resolved]

NARRATIVE: CASE EVENT DATE: 20210101
